FAERS Safety Report 5699665-6 (Version None)
Quarter: 2008Q2

REPORT INFORMATION
  Report Type: 
  Country: None (occurrence: None)
  Receive Date: 20080410
  Receipt Date: 20080402
  Transmission Date: 20081010
  Serious: Yes (Hospitalization, Other)
  Sender: FDA-Public Use
  Company Number: PHEH2008US02855

PATIENT
  Age: 81 Year
  Sex: Female
  Weight: 72.562 kg

DRUGS (9)
  1. RECLAST [Suspect]
     Indication: OSTEOPOROSIS
     Dosage: 5 MG, ONCE/SINGLE
     Dates: start: 20080220
  2. CALCIUM WITH VITAMIN D [Concomitant]
     Dosage: UNK, QD
     Route: 048
  3. ASPIRIN [Concomitant]
     Dosage: 81 MG, QD
     Route: 048
  4. LORAZEPAM [Concomitant]
     Dosage: UNK, PRN
  5. PREVACID [Concomitant]
     Dosage: 30 MG, QD
     Route: 048
  6. LISINOPRIL AND HYDROCHLOROTHIAZIDE [Concomitant]
     Dosage: 10-12.5 MG, QD
     Route: 048
  7. CRESTOR [Concomitant]
     Dosage: 10 MG, QD
     Route: 048
  8. TOPROL-XL [Concomitant]
     Dosage: UNK, QD
     Route: 048
  9. MELOXICAM [Concomitant]
     Dosage: 15 MG, QD
     Route: 048

REACTIONS (11)
  - ANXIETY [None]
  - ARTHRALGIA [None]
  - ASTHENIA [None]
  - BACK PAIN [None]
  - BLOOD CREATININE INCREASED [None]
  - CHEST DISCOMFORT [None]
  - CHILLS [None]
  - DEPRESSION [None]
  - FATIGUE [None]
  - HEADACHE [None]
  - MYALGIA [None]
